FAERS Safety Report 11755640 (Version 1)
Quarter: 2015Q4

REPORT INFORMATION
  Report Type: Spontaneous
  Country: CA (occurrence: CA)
  Receive Date: 20151119
  Receipt Date: 20151119
  Transmission Date: 20160304
  Serious: Yes (Hospitalization, Other)
  Sender: FDA-Public Use
  Company Number: CA-TEVA-609712USA

PATIENT
  Age: 12 Year
  Sex: Female
  Weight: 64 kg

DRUGS (16)
  1. NAPROXEN. [Suspect]
     Active Substance: NAPROXEN
     Indication: RHEUMATOID ARTHRITIS
     Route: 065
  2. HYDROXYCHLOROQUINE [Suspect]
     Active Substance: HYDROXYCHLOROQUINE
     Indication: RHEUMATOID ARTHRITIS
     Dosage: 5 MG/KG DAILY;
     Route: 048
  3. PREDNISONE. [Suspect]
     Active Substance: PREDNISONE
     Indication: RHEUMATOID ARTHRITIS
     Dates: start: 200510, end: 201501
  4. INFLIXIMAB [Suspect]
     Active Substance: INFLIXIMAB
     Dosage: 5MG/DOSE
     Route: 042
     Dates: start: 200711, end: 200803
  5. TOCILIZUMAB [Suspect]
     Active Substance: TOCILIZUMAB
     Indication: RHEUMATOID ARTHRITIS
     Dosage: 20 MILLIGRAM DAILY;
     Route: 042
     Dates: start: 201110, end: 201203
  6. ETANERCEPT [Suspect]
     Active Substance: ETANERCEPT
     Dosage: 7.1429 MILLIGRAM DAILY;
     Route: 058
     Dates: start: 200703, end: 200706
  7. TRIAMCINOLONE [Suspect]
     Active Substance: TRIAMCINOLONE
     Dates: start: 201402
  8. ADALIMUMAB [Suspect]
     Active Substance: ADALIMUMAB
     Indication: RHEUMATOID ARTHRITIS
     Dates: start: 200804, end: 200806
  9. TRIAMCINOLONE [Suspect]
     Active Substance: TRIAMCINOLONE
     Indication: RHEUMATOID ARTHRITIS
  10. ABATACEPT [Suspect]
     Active Substance: ABATACEPT
     Indication: RHEUMATOID ARTHRITIS
     Dosage: 8.3333 MILLIGRAM DAILY;
     Route: 041
     Dates: start: 201007, end: 201009
  11. SULFASALAZINE. [Suspect]
     Active Substance: SULFASALAZINE
     Indication: RHEUMATOID ARTHRITIS
     Dosage: 250 MILLIGRAM DAILY;
     Route: 048
  12. IVIG [Suspect]
     Active Substance: HUMAN IMMUNOGLOBULIN G
     Indication: RHEUMATOID ARTHRITIS
     Dates: start: 200806, end: 200808
  13. ANAKINRA [Suspect]
     Active Substance: ANAKINRA
     Indication: RHEUMATOID ARTHRITIS
     Dosage: 50 MILLIGRAM DAILY;
     Route: 058
     Dates: start: 200808, end: 201007
  14. METHOTREXATE [Suspect]
     Active Substance: METHOTREXATE
     Indication: RHEUMATOID ARTHRITIS
     Dosage: 2.1429 MG/M2 DAILY;
     Dates: end: 2014
  15. ETANERCEPT [Suspect]
     Active Substance: ETANERCEPT
     Indication: RHEUMATOID ARTHRITIS
     Dosage: 1.7857 MILLIGRAM DAILY;
     Route: 058
     Dates: start: 200608
  16. INFLIXIMAB [Suspect]
     Active Substance: INFLIXIMAB
     Indication: RHEUMATOID ARTHRITIS
     Dosage: .0714 MG/KG DAILY;
     Route: 042
     Dates: start: 200707, end: 200711

REACTIONS (15)
  - Septic shock [Unknown]
  - Human antichimeric antibody positive [Unknown]
  - Body height below normal [Unknown]
  - Rheumatoid arthritis [Unknown]
  - Obesity [Unknown]
  - Synovitis [Unknown]
  - Adrenal insufficiency [Unknown]
  - Vomiting [Unknown]
  - Drug ineffective [Unknown]
  - Drug effect decreased [Unknown]
  - Diarrhoea [Unknown]
  - Joint destruction [Unknown]
  - Bone density decreased [Unknown]
  - Nausea [Unknown]
  - Dizziness [Unknown]
